FAERS Safety Report 4283984-4 (Version None)
Quarter: 2004Q1

REPORT INFORMATION
  Report Type: 
  Country: None (occurrence: None)
  Receive Date: 20040202
  Receipt Date: 20040202
  Transmission Date: 20041129
  Serious: Yes (Disabling)
  Sender: FDA-Public Use
  Company Number: None

PATIENT
  Sex: Male
  Weight: 120.2032 kg

DRUGS (1)
  1. TEQUIN [Suspect]
     Indication: PRODUCTIVE COUGH
     Dosage: 400 MG QID ORAL
     Route: 048
     Dates: start: 20040120, end: 20040122

REACTIONS (3)
  - CANDIDIASIS [None]
  - HAEMORRHOIDAL HAEMORRHAGE [None]
  - OESOPHAGITIS [None]
